FAERS Safety Report 7619072-6 (Version None)
Quarter: 2011Q3

REPORT INFORMATION
  Report Type: 
  Country: None (occurrence: None)
  Receive Date: 20110718
  Receipt Date: 20110711
  Transmission Date: 20111222
  Serious: Yes (Other)
  Sender: FDA-Public Use
  Company Number: CN-ASTRAZENECA-2011SE40955

PATIENT
  Sex: Female

DRUGS (4)
  1. PROPOFOL [Suspect]
     Dosage: 2-2.5 MG/KG
     Route: 042
  2. SODIUM CHLORIDE [Concomitant]
  3. LIDOCAINE [Suspect]
     Route: 042
  4. PROPOFOL [Suspect]
     Dosage: 15-25 MG PER TIME
     Route: 042

REACTIONS (2)
  - ABORTION INDUCED [None]
  - RESPIRATORY DEPRESSION [None]
